FAERS Safety Report 7210996-0 (Version None)
Quarter: 2010Q4

REPORT INFORMATION
  Report Type: 
  Country: None (occurrence: None)
  Receive Date: 20101223
  Receipt Date: 20101214
  Transmission Date: 20110411
  Serious: Yes (Hospitalization)
  Sender: FDA-Public Use
  Company Number: OMPQ-NO-1012S-1048

PATIENT
  Age: 67 Year
  Sex: Female

DRUGS (15)
  1. OMNIPAQUE 140 [Suspect]
     Indication: PRODUCT USED FOR UNKNOWN INDICATION
     Dosage: SINGLE DOSE, P.O.
     Route: 048
     Dates: start: 20101206, end: 20101206
  2. IOPAMIDOL [Concomitant]
  3. AMOXICILLIN [Concomitant]
  4. AMOXICILLIN WITH POTASSIUM CLAVULVANATE (CO-AMOXICLAV) [Concomitant]
  5. CODEINE PHOSPHATE WITH PARACETAMOL (CO-CODAMOL) [Concomitant]
  6. HYOSCINE HBR HYT [Concomitant]
  7. LANSOPRAZOLE [Concomitant]
  8. METRONIDAZOLE [Concomitant]
  9. PREDNISOLONE [Concomitant]
  10. RAMIPRIL [Concomitant]
  11. RANITIDINE [Concomitant]
  12. ALBUTEROL [Concomitant]
  13. FLUTICASONEPROPRIONATE MICRONISED WITH SALMETEROL XINAFOATE MICRONISED [Concomitant]
  14. TRAMADOL HYDROCHLORIDE [Concomitant]
  15. TRIMETHOPRIM [Concomitant]

REACTIONS (6)
  - ABDOMINAL PAIN UPPER [None]
  - BACK PAIN [None]
  - DIARRHOEA [None]
  - DIVERTICULITIS [None]
  - HYPERSENSITIVITY [None]
  - VOMITING [None]
